FAERS Safety Report 18705518 (Version 2)
Quarter: 2021Q1

REPORT INFORMATION
  Report Type: Report from Study
  Country: JP (occurrence: JP)
  Receive Date: 20210106
  Receipt Date: 20210317
  Transmission Date: 20210419
  Serious: Yes (Other)
  Sender: FDA-Public Use
  Company Number: NVSJ2020JP005765

PATIENT
  Age: 77 Year
  Sex: Male
  Weight: 56.6 kg

DRUGS (17)
  1. TAFINLAR [Suspect]
     Active Substance: DABRAFENIB MESYLATE
     Dosage: UNK
     Route: 048
     Dates: start: 20200710
  2. MEKINIST [Suspect]
     Active Substance: TRAMETINIB DIMETHYL SULFOXIDE
     Dosage: UNK
     Route: 048
     Dates: start: 20200627
  3. TAFINLAR [Suspect]
     Active Substance: DABRAFENIB MESYLATE
     Dosage: UNK
     Route: 048
     Dates: start: 20200721
  4. MEKINIST [Suspect]
     Active Substance: TRAMETINIB DIMETHYL SULFOXIDE
     Dosage: UNK
     Route: 048
     Dates: start: 20200618
  5. DUTASTERIDE. [Concomitant]
     Active Substance: DUTASTERIDE
     Indication: BENIGN PROSTATIC HYPERPLASIA
     Dosage: UNK
     Route: 048
  6. TAFINLAR [Suspect]
     Active Substance: DABRAFENIB MESYLATE
     Dosage: UNK
     Route: 048
     Dates: start: 20200702
  7. MEKINIST [Suspect]
     Active Substance: TRAMETINIB DIMETHYL SULFOXIDE
     Indication: THYROID CANCER METASTATIC
     Dosage: UNK
     Route: 048
     Dates: start: 20200509
  8. MEKINIST [Suspect]
     Active Substance: TRAMETINIB DIMETHYL SULFOXIDE
     Dosage: UNK
     Route: 048
     Dates: start: 20200702
  9. MEKINIST [Suspect]
     Active Substance: TRAMETINIB DIMETHYL SULFOXIDE
     Dosage: UNK
     Route: 048
     Dates: start: 20200721
  10. TAFINLAR [Suspect]
     Active Substance: DABRAFENIB MESYLATE
     Dosage: UNK
     Route: 048
     Dates: start: 20200618
  11. MEKINIST [Suspect]
     Active Substance: TRAMETINIB DIMETHYL SULFOXIDE
     Dosage: UNK
     Route: 065
     Dates: start: 20200710
  12. SILODOSIN. [Concomitant]
     Active Substance: SILODOSIN
     Indication: DYSURIA
     Dosage: UNK
     Route: 048
  13. UBRETID [Concomitant]
     Active Substance: DISTIGMINE BROMIDE
     Indication: DYSURIA
     Dosage: UNK
     Route: 048
  14. TAFINLAR [Suspect]
     Active Substance: DABRAFENIB MESYLATE
     Dosage: UNK
     Route: 048
     Dates: start: 20200627
  15. TAFINLAR [Suspect]
     Active Substance: DABRAFENIB MESYLATE
     Dosage: UNK
     Route: 048
     Dates: start: 20200818, end: 20201029
  16. TAFINLAR [Suspect]
     Active Substance: DABRAFENIB MESYLATE
     Indication: THYROID CANCER METASTATIC
     Dosage: UNK
     Route: 048
     Dates: start: 20200509
  17. MEKINIST [Suspect]
     Active Substance: TRAMETINIB DIMETHYL SULFOXIDE
     Dosage: UNK
     Route: 048
     Dates: start: 20200818, end: 20201029

REACTIONS (13)
  - Urinary retention [Recovered/Resolved]
  - Haematuria [Recovered/Resolved]
  - Hypoalbuminaemia [Recovering/Resolving]
  - Pyrexia [Recovered/Resolved]
  - Blood alkaline phosphatase increased [Recovering/Resolving]
  - Cystitis bacterial [Recovered/Resolved]
  - Gamma-glutamyltransferase increased [Recovering/Resolving]
  - Thyroid cancer metastatic [Unknown]
  - Neutrophil count decreased [Recovered/Resolved]
  - Cystitis bacterial [Recovered/Resolved]
  - Haematuria [Recovered/Resolved]
  - Malignant neoplasm progression [Unknown]
  - Urticaria [Recovering/Resolving]

NARRATIVE: CASE EVENT DATE: 20200509
